FAERS Safety Report 4325298-X (Version None)
Quarter: 2004Q1

REPORT INFORMATION
  Report Type: 
  Country: None (occurrence: None)
  Receive Date: 20040326
  Receipt Date: 20040326
  Transmission Date: 20041129
  Serious: Yes (Hospitalization)
  Sender: FDA-Public Use
  Company Number: None

PATIENT
  Age: 74 Year
  Sex: Female

DRUGS (1)
  1. XOLAIR [Suspect]
     Indication: ASTHMA
     Dosage: 300 MG ONCE SUBCUTANEOUS
     Route: 058
     Dates: start: 20040322, end: 20040322

REACTIONS (6)
  - CHILLS [None]
  - DYSPNOEA [None]
  - JOINT SWELLING [None]
  - RASH PRURITIC [None]
  - URTICARIA [None]
  - WHEEZING [None]
